FAERS Safety Report 12833205 (Version 1)
Quarter: 2016Q4

REPORT INFORMATION
  Report Type: Spontaneous
  Country: US (occurrence: US)
  Receive Date: 20161010
  Receipt Date: 20161010
  Transmission Date: 20170207
  Serious: No
  Sender: FDA-Public Use
  Company Number: US-DRREDDYS-DRL/USA/16/0079546

PATIENT
  Age: 56 Year
  Sex: Female
  Weight: 111.1 kg

DRUGS (2)
  1. METOPROLOL SUCCINATE. [Suspect]
     Active Substance: METOPROLOL SUCCINATE
     Indication: HYPERTENSION
     Route: 048
  2. METOPROLOL SUCCINATE. [Suspect]
     Active Substance: METOPROLOL SUCCINATE
     Indication: HEART RATE ABNORMAL

REACTIONS (4)
  - Headache [Recovered/Resolved]
  - Product solubility abnormal [Unknown]
  - Drug ineffective [Unknown]
  - Palpitations [Recovered/Resolved]
